FAERS Safety Report 17688210 (Version 1)
Quarter: 2020Q2

REPORT INFORMATION
  Report Type: Spontaneous
  Country: IT (occurrence: IT)
  Receive Date: 20200421
  Receipt Date: 20200421
  Transmission Date: 20200714
  Serious: Yes (Other)
  Sender: FDA-Public Use
  Company Number: NVSC2020IT104815

PATIENT
  Age: 52 Year
  Sex: Female

DRUGS (14)
  1. DARUNAVIR [Concomitant]
     Active Substance: DARUNAVIR
     Indication: PNEUMONIA VIRAL
  2. RITONAVIR. [Interacting]
     Active Substance: RITONAVIR
     Indication: PNEUMONIA VIRAL
  3. TACROLIMUS. [Suspect]
     Active Substance: TACROLIMUS
     Indication: RENAL TRANSPLANT
     Dosage: UNK
     Route: 065
  4. TACROLIMUS. [Interacting]
     Active Substance: TACROLIMUS
     Indication: IMMUNOSUPPRESSANT DRUG THERAPY
  5. HYDROXYCHLOROQUINE SULFATE. [Suspect]
     Active Substance: HYDROXYCHLOROQUINE SULFATE
     Indication: CORONAVIRUS INFECTION
     Dosage: 200 MG, BID
     Route: 065
  6. DARUNAVIR [Concomitant]
     Active Substance: DARUNAVIR
     Indication: CORONAVIRUS INFECTION
     Dosage: UNK
     Route: 065
  7. COBICISTAT [Concomitant]
     Active Substance: COBICISTAT
     Indication: CORONAVIRUS INFECTION
     Dosage: UNK
     Route: 065
  8. COBICISTAT [Concomitant]
     Active Substance: COBICISTAT
     Indication: PNEUMONIA VIRAL
  9. COLCHICINE. [Concomitant]
     Active Substance: COLCHICINE
     Dosage: 0.5 MG, QD
     Route: 065
  10. COLCHICINE. [Concomitant]
     Active Substance: COLCHICINE
     Indication: PRODUCT USED FOR UNKNOWN INDICATION
     Dosage: 1 MG ON DAY 8
     Route: 065
  11. RITONAVIR. [Interacting]
     Active Substance: RITONAVIR
     Indication: CORONAVIRUS INFECTION
     Dosage: UNK
     Route: 065
  12. MYCOPHENOLATE MOFETIL. [Concomitant]
     Active Substance: MYCOPHENOLATE MOFETIL
     Indication: RENAL TRANSPLANT
     Dosage: UNK
     Route: 065
  13. HYDROXYCHLOROQUINE SULFATE. [Suspect]
     Active Substance: HYDROXYCHLOROQUINE SULFATE
     Indication: PNEUMONIA VIRAL
  14. MYCOPHENOLATE MOFETIL. [Concomitant]
     Active Substance: MYCOPHENOLATE MOFETIL
     Indication: IMMUNOSUPPRESSANT DRUG THERAPY

REACTIONS (5)
  - Disease progression [Unknown]
  - Hepatic failure [Unknown]
  - Drug interaction [Unknown]
  - Product use in unapproved indication [Unknown]
  - Pneumonia viral [Unknown]
